FAERS Safety Report 8491502-X (Version None)
Quarter: 2012Q2

REPORT INFORMATION
  Report Type: 
  Country: None (occurrence: None)
  Receive Date: 20120402
  Receipt Date: 20100217
  Transmission Date: 20120825
  Serious: Yes (Hospitalization)
  Sender: FDA-Public Use
  Company Number: PHEH2010US02605

PATIENT
  Sex: Female

DRUGS (3)
  1. PRAVACHOL [Concomitant]
  2. EXFORGE [Suspect]
     Dosage: 5/320 QD, ORAL
     Route: 048
  3. LOPID [Concomitant]

REACTIONS (1)
  - RHABDOMYOLYSIS [None]
